FAERS Safety Report 11400192 (Version 1)
Quarter: 2015Q3

REPORT INFORMATION
  Report Type: Spontaneous
  Country: US (occurrence: US)
  Receive Date: 20150820
  Receipt Date: 20150820
  Transmission Date: 20151125
  Serious: No
  Sender: FDA-Public Use
  Company Number: US-ASTELLAS-2015US019286

PATIENT
  Age: 28 Year
  Sex: Male

DRUGS (3)
  1. AMBISOME [Suspect]
     Active Substance: AMPHOTERICIN B
     Dosage: UNKNOWN ROUTE, DOSE AND FREQUENCY.
     Route: 065
     Dates: start: 20150601
  2. AMBISOME [Suspect]
     Active Substance: AMPHOTERICIN B
     Indication: HISTOPLASMOSIS
     Route: 065
     Dates: start: 20150604, end: 20150604
  3. AMBISOME [Suspect]
     Active Substance: AMPHOTERICIN B
     Dosage: 5MG/KG I.E. 350 MG, UNKNOWN FREQ.
     Route: 041
     Dates: start: 20150528, end: 20150530

REACTIONS (5)
  - Dyspnoea [Recovered/Resolved]
  - Drug dose omission [Unknown]
  - Back pain [Recovered/Resolved]
  - Blood creatinine increased [Recovering/Resolving]
  - Flushing [Recovered/Resolved]

NARRATIVE: CASE EVENT DATE: 20150528
